FAERS Safety Report 7377077-7 (Version None)
Quarter: 2011Q1

REPORT INFORMATION
  Report Type: 
  Country: None (occurrence: None)
  Receive Date: 20110328
  Receipt Date: 20110316
  Transmission Date: 20110831
  Serious: No
  Sender: FDA-Public Use
  Company Number: US-BIOGENIDEC-2011BI010150

PATIENT
  Age: 57 Year
  Sex: Female

DRUGS (2)
  1. TYSABRI [Suspect]
     Indication: MULTIPLE SCLEROSIS
     Route: 042
     Dates: start: 20110126
  2. TYSABRI [Suspect]
     Route: 042
     Dates: start: 20070202, end: 20100604

REACTIONS (3)
  - DRUG EFFECT DECREASED [None]
  - ASTHENIA [None]
  - FALL [None]
